FAERS Safety Report 5581209-0 (Version None)
Quarter: 2007Q4

REPORT INFORMATION
  Report Type: 
  Country: None (occurrence: None)
  Receive Date: 20071227
  Receipt Date: 20071217
  Transmission Date: 20080405
  Serious: Yes (Hospitalization, Other)
  Sender: FDA-Public Use
  Company Number: 021844

PATIENT
  Age: 31 Year
  Sex: Female

DRUGS (1)
  1. SPRINTEC [Suspect]
     Indication: ORAL CONTRACEPTION
     Dosage: ORAL
     Route: 048

REACTIONS (4)
  - BLOOD HOMOCYSTEINE INCREASED [None]
  - CEREBRAL ISCHAEMIA [None]
  - FIBRIN DEGRADATION PRODUCTS INCREASED [None]
  - LOSS OF CONSCIOUSNESS [None]
